FAERS Safety Report 10592714 (Version 2)
Quarter: 2014Q4

REPORT INFORMATION
  Report Type: Report from Study
  Country: CH (occurrence: CH)
  Receive Date: 20141119
  Receipt Date: 20141119
  Transmission Date: 20150529
  Serious: Yes (Hospitalization)
  Sender: FDA-Public Use
  Company Number: CH-NOVOPROD-425000

PATIENT
  Age: 44 Year
  Sex: Female
  Weight: 97.6 kg

DRUGS (3)
  1. LIRAGLUTIDE FLEXPEN [Suspect]
     Active Substance: LIRAGLUTIDE
     Dosage: 3 MG, QD
     Route: 058
     Dates: start: 20140930, end: 20141006
  2. LIRAGLUTIDE FLEXPEN [Suspect]
     Active Substance: LIRAGLUTIDE
     Dosage: 3 MG, QD
     Route: 058
     Dates: start: 20111005, end: 20140929
  3. LIRAGLUTIDE FLEXPEN [Suspect]
     Active Substance: LIRAGLUTIDE
     Indication: OBESITY
     Dosage: 0.6 MG, QD
     Dates: start: 20110907

REACTIONS (1)
  - Cutis laxa [Recovered/Resolved]

NARRATIVE: CASE EVENT DATE: 20131101
